FAERS Safety Report 12792729 (Version 2)
Quarter: 2019Q2

REPORT INFORMATION
  Report Type: Spontaneous
  Country: US (occurrence: US)
  Receive Date: 20160929
  Receipt Date: 20190510
  Transmission Date: 20190711
  Serious: No
  Sender: FDA-Public Use
  Company Number: US-JAZZ-2016-US-011543

PATIENT
  Sex: Female

DRUGS (16)
  1. XYREM [Suspect]
     Active Substance: SODIUM OXYBATE
     Dosage: DOSE ADJUSTMENTS
     Route: 048
     Dates: start: 200912, end: 201001
  2. SYNTHROID [Concomitant]
     Active Substance: LEVOTHYROXINE SODIUM
  3. BELVIQ [Concomitant]
     Active Substance: LORCASERIN HYDROCHLORIDE
  4. GENOTROPIN [Concomitant]
     Active Substance: SOMATROPIN
  5. ATROVENT [Concomitant]
     Active Substance: IPRATROPIUM BROMIDE
  6. PRED FORTE [Concomitant]
     Active Substance: PREDNISOLONE ACETATE
  7. XYREM [Suspect]
     Active Substance: SODIUM OXYBATE
     Indication: NARCOLEPSY
     Dosage: 2.25 G, BID
     Route: 048
     Dates: start: 200912, end: 200912
  8. VITAMIN B12 [Concomitant]
     Active Substance: CYANOCOBALAMIN
  9. IRON [Suspect]
     Active Substance: IRON
     Indication: PRODUCT USED FOR UNKNOWN INDICATION
  10. LOCOID [Concomitant]
     Active Substance: HYDROCORTISONE BUTYRATE
  11. PROZAC [Concomitant]
     Active Substance: FLUOXETINE HYDROCHLORIDE
  12. RITALIN [Concomitant]
     Active Substance: METHYLPHENIDATE HYDROCHLORIDE
  13. ORTHO EVRA [Concomitant]
     Active Substance: ETHINYL ESTRADIOL\NORELGESTROMIN
  14. XYREM [Suspect]
     Active Substance: SODIUM OXYBATE
     Dosage: 4.5 G, BID
     Route: 048
     Dates: start: 201001
  15. AMITIZA [Concomitant]
     Active Substance: LUBIPROSTONE
  16. NUVIGIL [Concomitant]
     Active Substance: ARMODAFINIL

REACTIONS (3)
  - Abdominal discomfort [Unknown]
  - Photorefractive keratectomy [Unknown]
  - Vitamin B12 deficiency [Recovering/Resolving]

NARRATIVE: CASE EVENT DATE: 2016
